FAERS Safety Report 4686128-X (Version None)
Quarter: 2005Q2

REPORT INFORMATION
  Report Type: 
  Country: None (occurrence: None)
  Receive Date: 20050606
  Receipt Date: 20050524
  Transmission Date: 20051028
  Serious: Yes (Hospitalization, Disabling)
  Sender: FDA-Public Use
  Company Number: HQWYE613925FEB05

PATIENT
  Age: 43 Year
  Sex: Female

DRUGS (2)
  1. EFFEXOR XR [Suspect]
     Indication: MAJOR DEPRESSION
     Dosage: OVERDOSE ^OVER AND ABOVE^ THE 600 DOSE, ORAL
     Route: 048
     Dates: start: 20041201, end: 20041201
  2. PHENCYCLIDINE (PHENCYCLIDINE, ) [Suspect]

REACTIONS (10)
  - AGGRESSION [None]
  - BLOOD BICARBONATE INCREASED [None]
  - DELIRIUM [None]
  - DRUG SCREEN POSITIVE [None]
  - HAEMATOCRIT DECREASED [None]
  - INTENTIONAL MISUSE [None]
  - MUSCLE RIGIDITY [None]
  - PO2 INCREASED [None]
  - RED BLOOD CELL COUNT DECREASED [None]
  - TREMOR [None]
